FAERS Safety Report 5786407-9 (Version None)
Quarter: 2008Q2

REPORT INFORMATION
  Report Type: 
  Country: None (occurrence: None)
  Receive Date: 20080624
  Receipt Date: 20071005
  Transmission Date: 20081010
  Serious: No
  Sender: FDA-Public Use
  Company Number: US-ASTRAZENECA-2007UW19124

PATIENT
  Sex: Female
  Weight: 86.2 kg

DRUGS (2)
  1. PULMICORT FLEXHALER [Suspect]
     Indication: ASTHMA
     Route: 055
  2. LOPRESSOR [Concomitant]

REACTIONS (3)
  - DIZZINESS [None]
  - DYSGEUSIA [None]
  - NAUSEA [None]
